FAERS Safety Report 13424077 (Version 3)
Quarter: 2017Q4

REPORT INFORMATION
  Report Type: Spontaneous
  Country: US (occurrence: US)
  Receive Date: 20170410
  Receipt Date: 20171002
  Transmission Date: 20180320
  Serious: Yes (Hospitalization, Other)
  Sender: FDA-Public Use
  Company Number: US-BAYER-2017-067712

PATIENT
  Age: 31 Year
  Sex: Female
  Weight: 88.44 kg

DRUGS (2)
  1. MIRENA [Suspect]
     Active Substance: LEVONORGESTREL
     Indication: CONTRACEPTION
     Dosage: 20 MCG/24HR, CONT
     Route: 015
     Dates: start: 20100316, end: 20150629
  2. YASMIN [Suspect]
     Active Substance: DROSPIRENONE\ETHINYL ESTRADIOL
     Dosage: UNK
     Route: 048
     Dates: start: 20150413

REACTIONS (13)
  - Procedural pain [None]
  - Device physical property issue [None]
  - Device breakage [None]
  - Device difficult to use [None]
  - Abdominal pain [None]
  - Post procedural haemorrhage [None]
  - Hysterectomy [None]
  - Device use issue [None]
  - Anxiety [None]
  - Amenorrhoea [None]
  - Device difficult to use [None]
  - Embedded device [None]
  - Post procedural discomfort [None]

NARRATIVE: CASE EVENT DATE: 20100316
